FAERS Safety Report 8343975-0 (Version None)
Quarter: 2012Q2

REPORT INFORMATION
  Report Type: 
  Country: None (occurrence: None)
  Receive Date: 20120508
  Receipt Date: 20120501
  Transmission Date: 20120825
  Serious: Yes (Life-Threatening, Hospitalization)
  Sender: FDA-Public Use
  Company Number: US-BAYER-2012-028762

PATIENT
  Age: 33 Year
  Sex: Female
  Weight: 65.8 kg

DRUGS (18)
  1. DROSPIRENONE AND ETHINYL ESTRADIOL [Suspect]
  2. YAZ [Suspect]
     Dosage: UNK
     Dates: start: 20060101
  3. NAPROXEN [Concomitant]
     Dosage: 550 MG, UNK
     Route: 048
     Dates: start: 20061102, end: 20061108
  4. NAPROXEN (ALEVE) [Concomitant]
     Dosage: UNK
     Route: 048
     Dates: start: 20061014
  5. SKELAXIN [Concomitant]
     Dosage: 800 MG, UNK
     Route: 048
     Dates: start: 20061016
  6. MAXIPIME [Concomitant]
     Dosage: UNK
     Dates: start: 20061101
  7. INDOMETHACIN [Concomitant]
     Indication: SACROILIITIS
     Dosage: 25 MG, UNK
     Route: 048
     Dates: start: 20061006
  8. ANAPROX DS [Concomitant]
     Dosage: UNK
     Dates: start: 20061102
  9. PERCOCET [Concomitant]
     Dosage: 5/325MG
     Route: 048
     Dates: start: 20061108
  10. VANCOMYCIN [Concomitant]
     Dosage: UNK
     Dates: start: 20061101
  11. FLAGYL [Concomitant]
     Dosage: UNK
     Dates: start: 20061101
  12. ANAESTHETICS [Concomitant]
     Dosage: UNK
     Route: 008
     Dates: start: 20060923
  13. PREDNISONE TAB [Concomitant]
     Dosage: 10 MG, UNK
     Route: 048
     Dates: start: 20061108
  14. VICOPROFEN [Concomitant]
     Dosage: 7.5/20MG
     Route: 048
     Dates: start: 20061016
  15. CIPROFLOXACIN [Concomitant]
     Dosage: 250 MG, UNK
     Route: 048
     Dates: start: 20061016
  16. CEFEPIME [Concomitant]
     Dosage: UNK
     Dates: start: 20061101
  17. YASMIN [Suspect]
  18. PRENATAL [VIT C,B5,B12,D2,B3,B6,RETINOL PALMIT,B2,B1 MONONITR] [Concomitant]
     Dosage: UNK
     Dates: start: 20060815

REACTIONS (7)
  - DEEP VEIN THROMBOSIS [None]
  - PAIN [None]
  - GENERAL PHYSICAL HEALTH DETERIORATION [None]
  - PULMONARY EMBOLISM [None]
  - ANXIETY [None]
  - ANHEDONIA [None]
  - INJURY [None]
